FAERS Safety Report 9750102 (Version 2)
Quarter: 2013Q4

REPORT INFORMATION
  Report Type: Spontaneous
  Country: US (occurrence: US)
  Receive Date: 20131212
  Receipt Date: 20131212
  Transmission Date: 20140711
  Serious: No
  Sender: FDA-Public Use
  Company Number: US-GILEAD-US-CVT-100002

PATIENT
  Sex: Female
  Weight: 126.26 kg

DRUGS (13)
  1. RANEXA [Suspect]
     Indication: ANGINA PECTORIS
     Route: 048
     Dates: start: 20091204
  2. RANEXA [Suspect]
  3. SIMVASTATIN [Concomitant]
  4. NEBIVOLOL [Concomitant]
  5. ENALAPRIL MALEATE [Concomitant]
  6. TRICOR [Concomitant]
  7. HYDROCHLOROTHIAZIDE [Concomitant]
  8. ECOTRIN [Concomitant]
  9. GLIPIZIDE [Concomitant]
  10. ACTOS /01460201/ [Concomitant]
  11. LEVEMIR [Concomitant]
  12. LEVOXYL [Concomitant]
  13. ZINC                               /00156501/ [Concomitant]

REACTIONS (1)
  - Psoriasis [Unknown]
